FAERS Safety Report 7789368-6 (Version None)
Quarter: 2011Q3

REPORT INFORMATION
  Report Type: 
  Country: None (occurrence: None)
  Receive Date: 20110930
  Receipt Date: 20110921
  Transmission Date: 20111222
  Serious: Yes (Hospitalization)
  Sender: FDA-Public Use
  Company Number: DE-GLAXOSMITHKLINE-B0751418A

PATIENT
  Age: 73 Year
  Sex: Male

DRUGS (18)
  1. PANTOPRAZOLE [Suspect]
     Indication: GASTRITIS PROPHYLAXIS
     Dosage: 40MG PER DAY
     Route: 065
     Dates: start: 20101228
  2. OXALIPLATIN [Suspect]
     Indication: PANCREATIC CARCINOMA
     Route: 065
  3. LEUCOVORIN CALCIUM [Suspect]
     Indication: PANCREATIC CARCINOMA
     Route: 065
  4. DEXAMETHASONE [Suspect]
     Indication: PROPHYLAXIS OF NAUSEA AND VOMITING
     Dosage: 8MG AS REQUIRED
     Route: 065
     Dates: start: 20110809, end: 20110809
  5. TPN [Suspect]
     Indication: CACHEXIA
     Dosage: 1800ML PER DAY
     Route: 065
     Dates: start: 20110812
  6. METOPROLOL [Suspect]
     Indication: HYPERTENSION
     Dosage: 25MG PER DAY
     Route: 065
     Dates: start: 20040601
  7. CREON [Suspect]
     Indication: PANCREATIC INSUFFICIENCY
     Dosage: 40000UNIT AS REQUIRED
     Route: 065
     Dates: start: 20101228
  8. METFORMIN HCL [Suspect]
     Indication: DIABETES MELLITUS
     Dosage: 850MG TWICE PER DAY
     Route: 065
     Dates: start: 20030601
  9. LAPATINIB [Suspect]
     Indication: PANCREATIC CARCINOMA
     Route: 048
  10. FENOTEROL [Suspect]
     Indication: CHRONIC OBSTRUCTIVE PULMONARY DISEASE
     Route: 065
     Dates: start: 20110626
  11. ENOXAPARIN SODIUM [Suspect]
     Indication: THROMBOSIS
     Dosage: .6ML PER DAY
     Route: 065
     Dates: start: 20110412
  12. EFUDEX [Suspect]
     Indication: PANCREATIC CARCINOMA
     Route: 065
  13. ZOFRAN [Suspect]
     Indication: PROPHYLAXIS OF NAUSEA AND VOMITING
     Route: 065
     Dates: start: 20110809, end: 20110809
  14. REPAGLINIDE [Suspect]
     Indication: DIABETES MELLITUS
     Dosage: 1MG PER DAY
     Route: 065
     Dates: start: 20110426, end: 20110815
  15. COSOPT [Suspect]
     Indication: GLAUCOMA
     Dosage: 1DROP TWICE PER DAY
     Route: 065
  16. XALATAN [Suspect]
     Indication: GLAUCOMA
     Dosage: 1DROP PER DAY
     Route: 065
  17. LEVOTHYROXINE SODIUM [Suspect]
     Indication: HYPOTHYROIDISM
     Dosage: 150MCG PER DAY
     Route: 065
     Dates: start: 20030601
  18. TORSEMIDE [Suspect]
     Indication: OEDEMA
     Dosage: 10MG PER DAY
     Route: 065

REACTIONS (1)
  - HYPERGLYCAEMIA [None]
